FAERS Safety Report 5459885-2 (Version None)
Quarter: 2007Q3

REPORT INFORMATION
  Report Type: 
  Country: None (occurrence: None)
  Receive Date: 20070919
  Receipt Date: 20070918
  Transmission Date: 20080115
  Serious: Yes (Other)
  Sender: FDA-Public Use
  Company Number: US-BRISTOL-MYERS SQUIBB COMPANY-13912597

PATIENT
  Age: 64 Year
  Sex: Male
  Weight: 84 kg

DRUGS (19)
  1. CETUXIMAB [Suspect]
     Indication: NEOPLASM MALIGNANT
     Route: 042
     Dates: start: 20070910, end: 20070910
  2. CISPLATIN [Suspect]
     Indication: NEOPLASM MALIGNANT
     Route: 042
     Dates: start: 20070910, end: 20070910
  3. RADIATION THERAPY [Suspect]
     Indication: NEOPLASM MALIGNANT
     Dosage: DOSE-4600 CGY
     Dates: start: 20070914, end: 20070914
  4. CELEXA [Concomitant]
  5. DEXAMETHASONE 0.5MG TAB [Concomitant]
  6. DIPHENHYDRAMINE HCL [Concomitant]
  7. FENTANYL [Concomitant]
  8. HYDROCORTISONE [Concomitant]
  9. LORAZEPAM [Concomitant]
  10. MINOCYCLINE HCL [Concomitant]
  11. MIRALAX [Concomitant]
  12. ONDANSETRON [Concomitant]
  13. PALONOSETRON [Concomitant]
  14. PROCHLORPERAZINE [Concomitant]
  15. RANITIDINE [Concomitant]
  16. ROXICET [Concomitant]
  17. SENOKOT [Concomitant]
  18. ZOLPIDEM TARTRATE [Concomitant]
  19. MAALOX [Concomitant]

REACTIONS (1)
  - LYMPHOPENIA [None]
